FAERS Safety Report 9691539 (Version 1)
Quarter: 2013Q4

REPORT INFORMATION
  Report Type: Spontaneous
  Country: GB (occurrence: GB)
  Receive Date: 20131115
  Receipt Date: 20131115
  Transmission Date: 20140711
  Serious: Yes (Death)
  Sender: FDA-Public Use
  Company Number: PHHY2013GB130028

PATIENT
  Age: 26 Year
  Sex: Male
  Weight: 56 kg

DRUGS (1)
  1. TRAMADOL HYDROCHLORIDE [Suspect]
     Indication: PAIN
     Dosage: 200 MG
     Route: 048
     Dates: start: 20131101

REACTIONS (1)
  - Sickle cell anaemia [Fatal]
